FAERS Safety Report 5837620-3 (Version None)
Quarter: 2008Q3

REPORT INFORMATION
  Report Type: 
  Country: None (occurrence: None)
  Receive Date: 20080807
  Receipt Date: 20080730
  Transmission Date: 20090109
  Serious: Yes (Hospitalization)
  Sender: FDA-Public Use
  Company Number: FR-PFIZER INC-2008064076

PATIENT
  Sex: Female
  Weight: 120 kg

DRUGS (9)
  1. DEPO-MEDROL [Suspect]
     Route: 037
     Dates: start: 20080227, end: 20080328
  2. ARACYTIN [Suspect]
     Route: 037
     Dates: start: 20080227, end: 20080328
  3. DOXORUBICIN HCL [Suspect]
     Route: 042
     Dates: start: 20080227, end: 20080328
  4. CYCLOPHOSPHAMIDE [Suspect]
     Route: 042
     Dates: start: 20080220, end: 20080328
  5. VINCRISTINE [Suspect]
     Route: 042
     Dates: start: 20080220, end: 20080328
  6. RITUXIMAB [Suspect]
     Route: 042
     Dates: start: 20080227, end: 20080328
  7. CITALOPRAM HYDROBROMIDE [Concomitant]
  8. LEVOTHYROXINE SODIUM [Concomitant]
  9. ALL OTHER THERAPEUTIC PRODUCTS [Concomitant]

REACTIONS (2)
  - LUNG DISORDER [None]
  - PYREXIA [None]
